FAERS Safety Report 5025001-4 (Version None)
Quarter: 2006Q2

REPORT INFORMATION
  Report Type: 
  Country: None (occurrence: None)
  Receive Date: 20060607
  Receipt Date: 20060523
  Transmission Date: 20061013
  Serious: Yes (Other)
  Sender: FDA-Public Use
  Company Number: CA200604003880

PATIENT
  Age: 75 Year
  Sex: Male

DRUGS (2)
  1. FORTEO [Suspect]
     Indication: OSTEOPOROSIS
     Dosage: 20 UG, DAILY (1/D)
     Dates: start: 20041110
  2. FORTEO PEN (250MCG/ML) [Concomitant]

REACTIONS (2)
  - ARTERIOSCLEROSIS [None]
  - PARKINSONISM [None]
